FAERS Safety Report 8927192 (Version 2)
Quarter: 2013Q1

REPORT INFORMATION
  Report Type: Spontaneous
  Country: IT (occurrence: IT)
  Receive Date: 20121127
  Receipt Date: 20130108
  Transmission Date: 20140127
  Serious: Yes (Hospitalization)
  Sender: FDA-Public Use
  Company Number: IT-CELGENEUS-083-21880-12112153

PATIENT
  Age: 77 Year
  Sex: Female

DRUGS (6)
  1. REVLIMID [Suspect]
     Indication: PLASMA CELL MYELOMA
     Dosage: 25 MILLIGRAM
     Route: 048
     Dates: start: 20110627, end: 201106
  2. INSULIN [Concomitant]
     Indication: TYPE 2 DIABETES MELLITUS
     Route: 065
     Dates: start: 2010
  3. ANGIOTENSION-CONVERTING ENZYME INHIBITORS [Concomitant]
     Indication: HYPERTENSION
     Dates: end: 2009
  4. LANTUS [Concomitant]
     Indication: PRODUCT USED FOR UNKNOWN INDICATION
     Dosage: 10 IU (INTERNATIONAL UNIT)
     Route: 065
     Dates: start: 2010
  5. ACTRAPID [Concomitant]
     Indication: PRODUCT USED FOR UNKNOWN INDICATION
     Dosage: 30 IU (INTERNATIONAL UNIT)
     Route: 065
     Dates: start: 2010
  6. COAPROVEL [Concomitant]
     Indication: HYPERTENSION
     Dosage: 300/12.5 MG
     Route: 065
     Dates: start: 2009

REACTIONS (1)
  - Drug reaction with eosinophilia and systemic symptoms [Recovered/Resolved]
